FAERS Safety Report 7233483-2 (Version None)
Quarter: 2011Q1

REPORT INFORMATION
  Report Type: 
  Country: None (occurrence: None)
  Receive Date: 20110119
  Receipt Date: 20110111
  Transmission Date: 20110831
  Serious: Yes (Other)
  Sender: FDA-Public Use
  Company Number: CHPA2011US00897

PATIENT
  Age: 5 Year
  Sex: Male
  Weight: 27.211 kg

DRUGS (2)
  1. TRIAMINIC DAY TIME COLD + COUGH [Suspect]
     Indication: COUGH
  2. TRIAMINIC DAY TIME COLD + COUGH [Suspect]
     Indication: NASOPHARYNGITIS
     Dosage: 1 DF, ONCE/SINGLE
     Route: 048
     Dates: start: 20101224, end: 20101224

REACTIONS (3)
  - SCREAMING [None]
  - HALLUCINATION, VISUAL [None]
  - FEELING COLD [None]
